FAERS Safety Report 19238987 (Version 1)
Quarter: 2021Q2

REPORT INFORMATION
  Report Type: Spontaneous
  Country: US (occurrence: US)
  Receive Date: 20210510
  Receipt Date: 20210510
  Transmission Date: 20210717
  Serious: No
  Sender: FDA-Public Use
  Company Number: US-KVK-TECH, INC-20210400040

PATIENT
  Age: 49 Year
  Sex: Female
  Weight: 83.9 kg

DRUGS (3)
  1. PHENTERMINE HYDROCHLORIDE CAPSULES, USP [Suspect]
     Active Substance: PHENTERMINE HYDROCHLORIDE
     Indication: WEIGHT DECREASED
     Dosage: AT A DOSE OF 37.5 MG CAPSULE, ONCE DAILY IN THE MORNING
     Route: 048
     Dates: start: 20210324, end: 20210325
  2. VITAMINS NOS [Concomitant]
     Active Substance: VITAMINS
  3. VITAMIN D [VITAMIN D NOS] [Concomitant]
     Active Substance: VITAMIN D NOS

REACTIONS (1)
  - Nausea [Not Recovered/Not Resolved]

NARRATIVE: CASE EVENT DATE: 20210324
